APPROVED DRUG PRODUCT: METHYLPREDNISOLONE SODIUM SUCCINATE
Active Ingredient: METHYLPREDNISOLONE SODIUM SUCCINATE
Strength: EQ 125MG BASE/VIAL
Dosage Form/Route: INJECTABLE;INJECTION
Application: A203125 | Product #002 | TE Code: AP
Applicant: HIKMA FARMACEUTICA PORTUGAL SA
Approved: Sep 26, 2022 | RLD: No | RS: No | Type: RX